FAERS Safety Report 21422723 (Version 1)
Quarter: 2022Q4

REPORT INFORMATION
  Report Type: Spontaneous
  Country: US (occurrence: US)
  Receive Date: 20221007
  Receipt Date: 20221007
  Transmission Date: 20230112
  Serious: No
  Sender: FDA-Public Use
  Company Number: US-PFIZER INC-PV202200048372

PATIENT
  Age: 69 Year
  Sex: Female

DRUGS (2)
  1. EUCRISA [Suspect]
     Active Substance: CRISABOROLE
     Indication: Eczema
     Dosage: UNK, DAILY [APPLY TO HANDS DAILY]
     Route: 061
     Dates: start: 20180815
  2. EUCRISA [Suspect]
     Active Substance: CRISABOROLE
     Indication: Hand dermatitis

REACTIONS (2)
  - Eczema [Unknown]
  - Off label use [Unknown]
